FAERS Safety Report 9258178 (Version 1)
Quarter: 2013Q2

REPORT INFORMATION
  Report Type: Spontaneous
  Country: BR (occurrence: BR)
  Receive Date: 20130426
  Receipt Date: 20130426
  Transmission Date: 20140414
  Serious: Yes (Hospitalization)
  Sender: FDA-Public Use
  Company Number: BR-PFIZER INC-2013126986

PATIENT
  Sex: Male

DRUGS (2)
  1. LONITEN [Suspect]
     Dosage: UNK
     Route: 048
     Dates: start: 20130411
  2. LONITEN [Suspect]
     Dosage: UNK
     Route: 048
     Dates: start: 20130420

REACTIONS (2)
  - Renal impairment [Recovered/Resolved]
  - Dysuria [Unknown]
